FAERS Safety Report 10873420 (Version 1)
Quarter: 2015Q1

REPORT INFORMATION
  Report Type: Spontaneous
  Country: US (occurrence: US)
  Receive Date: 20150227
  Receipt Date: 20150227
  Transmission Date: 20150721
  Serious: No
  Sender: FDA-Public Use
  Company Number: US-GE HEALTHCARE MEDICAL DIAGNOSTICS-INDT-PR-1402S-0001

PATIENT

DRUGS (2)
  1. INDIUM DTPA IN 111 [Suspect]
     Active Substance: INDIUM IN-111 PENTETATE DISODIUM
     Indication: PRODUCT USED FOR UNKNOWN INDICATION
     Route: 065
     Dates: start: 20140225, end: 20140225
  2. INDIUM DTPA IN 111 [Suspect]
     Active Substance: INDIUM IN-111 PENTETATE DISODIUM
     Indication: DIAGNOSTIC PROCEDURE

REACTIONS (2)
  - No adverse event [None]
  - Drug ineffective [Unknown]

NARRATIVE: CASE EVENT DATE: 20140225
